FAERS Safety Report 7234411-6 (Version None)
Quarter: 2011Q1

REPORT INFORMATION
  Report Type: 
  Country: None (occurrence: None)
  Receive Date: 20110119
  Receipt Date: 20110114
  Transmission Date: 20110831
  Serious: Yes (Hospitalization, Other)
  Sender: FDA-Public Use
  Company Number: FR-PFIZER INC-2011003423

PATIENT
  Age: 85 Year
  Sex: Female

DRUGS (6)
  1. TRIATEC [Concomitant]
     Dosage: 1.5 DF, 1X/DAY
  2. TAHOR [Suspect]
     Indication: HYPERCHOLESTEROLAEMIA
     Dosage: 40 MG, 1X/DAY
     Route: 048
  3. PREVISCAN [Interacting]
     Indication: PROPHYLAXIS
     Dosage: 10 MG, 1X/DAY
     Route: 048
  4. EZETROL [Interacting]
     Indication: HYPERCHOLESTEROLAEMIA
     Dosage: 10 MG, 1X/DAY
     Route: 048
  5. CARDENSIEL [Concomitant]
     Dosage: 5 MG, 1X/DAY
  6. STILNOX [Concomitant]
     Dosage: 1 DF, 1X/DAY

REACTIONS (6)
  - PAIN [None]
  - INTERNATIONAL NORMALISED RATIO INCREASED [None]
  - ABDOMINAL WALL HAEMATOMA [None]
  - DRUG INTERACTION [None]
  - BLOOD SODIUM DECREASED [None]
  - HAEMOGLOBIN DECREASED [None]
